FAERS Safety Report 19484838 (Version 2)
Quarter: 2021Q3

REPORT INFORMATION
  Report Type: Report from Study
  Country: None (occurrence: US)
  Receive Date: 20210701
  Receipt Date: 20210717
  Transmission Date: 20211014
  Serious: Yes (Hospitalization, Other)
  Sender: FDA-Public Use
  Company Number: US-ABBVIE-21K-163-3974010-00

PATIENT
  Age: 49 Year
  Sex: Male
  Weight: 64.29 kg

DRUGS (3)
  1. HUMIRA [Suspect]
     Active Substance: ADALIMUMAB
     Indication: COLITIS ULCERATIVE
     Dosage: DAY
     Route: 058
     Dates: start: 20210514, end: 202106
  2. PREDNISONE. [Concomitant]
     Active Substance: PREDNISONE
     Indication: COLITIS ULCERATIVE
  3. PREDNISONE. [Concomitant]
     Active Substance: PREDNISONE

REACTIONS (5)
  - Haemophagocytic lymphohistiocytosis [Recovering/Resolving]
  - Cytomegalovirus infection [Recovering/Resolving]
  - Pyrexia [Unknown]
  - Coccidioidomycosis [Recovering/Resolving]
  - Pneumonia fungal [Unknown]

NARRATIVE: CASE EVENT DATE: 2021
